FAERS Safety Report 8539326-9 (Version None)
Quarter: 2012Q3

REPORT INFORMATION
  Report Type: 
  Country: None (occurrence: None)
  Receive Date: 20120726
  Receipt Date: 20110727
  Transmission Date: 20120928
  Serious: No
  Sender: FDA-Public Use
  Company Number: US-ASTRAZENECA-2011SE45088

PATIENT
  Age: 67 Year
  Sex: Female
  Weight: 81.6 kg

DRUGS (4)
  1. VIMOVO [Concomitant]
     Indication: ARTHRITIS
  2. SYMBICORT [Concomitant]
     Indication: ASTHMA
  3. SOMA [Concomitant]
     Indication: SLEEP DISORDER
  4. SEROQUEL XR [Suspect]
     Indication: SLEEP DISORDER
     Route: 048
     Dates: start: 20110101, end: 20110101

REACTIONS (3)
  - OFF LABEL USE [None]
  - DRUG DOSE OMISSION [None]
  - INSOMNIA [None]
